FAERS Safety Report 15143583 (Version 2)
Quarter: 2020Q4

REPORT INFORMATION
  Report Type: Spontaneous
  Country: AU (occurrence: AU)
  Receive Date: 20180713
  Receipt Date: 20201119
  Transmission Date: 20210113
  Serious: Yes (Death, Other)
  Sender: FDA-Public Use
  Company Number: AU-JNJFOC-20180712485

PATIENT
  Age: 56 Year
  Sex: Female

DRUGS (1)
  1. STELARA [Suspect]
     Active Substance: USTEKINUMAB
     Indication: PSORIASIS
     Route: 058

REACTIONS (3)
  - Death [Fatal]
  - Cardiac arrest [Unknown]
  - Cholecystitis acute [Unknown]

NARRATIVE: CASE EVENT DATE: 20170721
